FAERS Safety Report 17353631 (Version 2)
Quarter: 2020Q1

REPORT INFORMATION
  Report Type: Report from Study
  Country: GR (occurrence: GR)
  Receive Date: 20200131
  Receipt Date: 20200203
  Transmission Date: 20200409
  Serious: Yes (Hospitalization)
  Sender: FDA-Public Use
  Company Number: GR-TAKEDA-2020TUS004080

PATIENT
  Age: 34 Year
  Sex: Male
  Weight: 87 kg

DRUGS (39)
  1. SANDIMMUN [Concomitant]
     Active Substance: CYCLOSPORINE
     Indication: PROPHYLAXIS AGAINST GRAFT VERSUS HOST DISEASE
     Dosage: UNK
     Route: 042
     Dates: start: 20191203, end: 20191203
  2. PRIMPERAN [Concomitant]
     Active Substance: METOCLOPRAMIDE HYDROCHLORIDE
     Indication: PROPHYLAXIS OF NAUSEA AND VOMITING
     Dosage: 10 MILLIGRAM, TID
     Route: 042
     Dates: start: 20191130, end: 20200109
  3. AMBISOME [Concomitant]
     Active Substance: AMPHOTERICIN B
     Indication: PYREXIA
     Dosage: 300 MILLIGRAM, QD
     Route: 042
     Dates: start: 20191205, end: 20191215
  4. VONCON [Concomitant]
     Active Substance: VANCOMYCIN HYDROCHLORIDE
     Indication: ANTIBIOTIC THERAPY
     Dosage: 1 GRAM, BID
     Route: 042
     Dates: start: 20191211, end: 20191214
  5. FOSCAVIR [Concomitant]
     Active Substance: FOSCARNET SODIUM
     Indication: ANTIBIOTIC THERAPY
     Dosage: 150 MILLILITER, BID
     Route: 042
     Dates: start: 20191214, end: 20191217
  6. MERONEM [Concomitant]
     Active Substance: MEROPENEM
     Dosage: 2 GRAM, TID
     Route: 042
     Dates: start: 20191222
  7. FENISTIL [Concomitant]
     Active Substance: DIMETHINDENE
     Dosage: 4 MILLIGRAM, QD
     Route: 042
     Dates: start: 20191205, end: 20191205
  8. CELLCEPT [Concomitant]
     Active Substance: MYCOPHENOLATE MOFETIL\MYCOPHENOLATE MOFETIL HYDROCHLORIDE
     Indication: PROPHYLAXIS AGAINST GRAFT VERSUS HOST DISEASE
     Dosage: UNK
     Route: 042
     Dates: start: 20191205, end: 20200112
  9. KONAKION [Concomitant]
     Active Substance: PHYTONADIONE
     Indication: HYPOVITAMINOSIS
     Dosage: 10 MILLIGRAM, 2/WEEK
     Route: 042
     Dates: start: 20191202, end: 20191220
  10. AMBISOME [Concomitant]
     Active Substance: AMPHOTERICIN B
     Indication: ANTIFUNGAL PROPHYLAXIS
     Dosage: 50 MILLIGRAM, QD
     Route: 042
     Dates: start: 20191130, end: 20191204
  11. COLISTIN [Concomitant]
     Active Substance: COLISTIN
     Dosage: 4500000 INTERNATIONAL UNIT, BID
     Route: 042
     Dates: start: 20191212, end: 20191222
  12. COLISTIN [Concomitant]
     Active Substance: COLISTIN
     Indication: ANTIBIOTIC THERAPY
     Dosage: 9000000 INTERNATIONAL UNIT, QD
     Route: 042
     Dates: start: 20191211, end: 20191211
  13. URSOFALK [Concomitant]
     Active Substance: URSODIOL
     Indication: PROPHYLAXIS AGAINST GRAFT VERSUS HOST DISEASE
     Dosage: UNK
     Route: 048
     Dates: start: 20191130
  14. SANDIMMUN [Concomitant]
     Active Substance: CYCLOSPORINE
     Dosage: UNK
     Route: 048
     Dates: start: 20191203, end: 20200114
  15. CELLCEPT [Concomitant]
     Active Substance: MYCOPHENOLATE MOFETIL\MYCOPHENOLATE MOFETIL HYDROCHLORIDE
     Dosage: UNK
     Route: 048
     Dates: start: 20191222, end: 20191230
  16. AMBISOME [Concomitant]
     Active Substance: AMPHOTERICIN B
     Dosage: 400 MILLIGRAM, QD
     Route: 042
     Dates: start: 20191216
  17. FOSCAVIR [Concomitant]
     Active Substance: FOSCARNET SODIUM
     Indication: ANTIBIOTIC THERAPY
     Dosage: 170 MILLILITER, QD
     Route: 042
     Dates: start: 20191218, end: 20200114
  18. ZOVIRAX [Concomitant]
     Active Substance: ACYCLOVIR
     Indication: ANTIVIRAL PROPHYLAXIS
     Dosage: 250 MILLIGRAM, TID
     Route: 042
     Dates: start: 20191205, end: 20191216
  19. ZOVIRAX [Concomitant]
     Active Substance: ACYCLOVIR
     Dosage: 250 MILLIGRAM, TID
     Route: 042
     Dates: start: 20191220, end: 20191221
  20. APOTEL [Concomitant]
     Active Substance: ACETAMINOPHEN
     Dosage: 1 GRAM, QD
     Route: 042
     Dates: start: 20191203, end: 20191203
  21. ZYVOXID [Concomitant]
     Active Substance: LINEZOLID
     Indication: ANTIBIOTIC THERAPY
     Dosage: 600 MILLIGRAM, BID
     Route: 042
     Dates: start: 20191214, end: 20191224
  22. HUMAN ACTRAPHANE [Concomitant]
     Indication: PROPHYLAXIS
     Dosage: 50 MILLILITER (PRN)
     Route: 042
     Dates: start: 20191216, end: 20191224
  23. FENISTIL [Concomitant]
     Active Substance: DIMETHINDENE
     Dosage: 4 MILLIGRAM, QD
     Route: 042
     Dates: start: 20191204, end: 20191204
  24. CELLCEPT [Concomitant]
     Active Substance: MYCOPHENOLATE MOFETIL\MYCOPHENOLATE MOFETIL HYDROCHLORIDE
     Dosage: UNK
     Route: 048
     Dates: start: 20191231, end: 20200111
  25. CELLCEPT [Concomitant]
     Active Substance: MYCOPHENOLATE MOFETIL\MYCOPHENOLATE MOFETIL HYDROCHLORIDE
     Dosage: UNK
     Route: 048
     Dates: start: 20200112
  26. LORDIN                             /00661201/ [Concomitant]
     Indication: GASTROINTESTINAL DISORDER PROPHYLAXIS
     Dosage: 40 MILLIGRAM
     Route: 042
     Dates: start: 20191130
  27. PLACEBO [Suspect]
     Active Substance: UNSPECIFIED INGREDIENT
     Indication: PROPHYLAXIS AGAINST GRAFT VERSUS HOST DISEASE
     Dosage: UNK
     Route: 042
     Dates: start: 20191203
  28. APOTEL [Concomitant]
     Active Substance: ACETAMINOPHEN
     Indication: PYREXIA
     Dosage: 1 GRAM
     Dates: start: 20191203, end: 20191205
  29. APOTEL [Concomitant]
     Active Substance: ACETAMINOPHEN
     Dosage: 1 GRAM
     Route: 042
     Dates: start: 20191211
  30. ZOFRON                             /00955301/ [Concomitant]
     Active Substance: ONDANSETRON
     Indication: PROPHYLAXIS OF NAUSEA AND VOMITING
     Dosage: 8 MILLIGRAM, BID
     Route: 042
     Dates: start: 20191130, end: 20200103
  31. VONCON [Concomitant]
     Active Substance: VANCOMYCIN HYDROCHLORIDE
     Indication: DIARRHOEA
     Dosage: 125 MILLIGRAM, QD
     Route: 048
     Dates: start: 20191205, end: 20191218
  32. FENISTIL [Concomitant]
     Active Substance: DIMETHINDENE
     Indication: VEHICLE SOLUTION USE
     Dosage: 4 MILLIGRAM, QD
     Route: 042
     Dates: start: 20191203, end: 20191203
  33. FENISTIL [Concomitant]
     Active Substance: DIMETHINDENE
     Dosage: 4 MILLIGRAM, QD
     Route: 042
     Dates: start: 20191207, end: 20191207
  34. FENISTIL [Concomitant]
     Active Substance: DIMETHINDENE
     Dosage: 4 MILLIGRAM, QD
     Route: 042
     Dates: start: 20191211, end: 20191211
  35. FENISTIL [Concomitant]
     Active Substance: DIMETHINDENE
     Dosage: 4 MILLIGRAM, QD
     Route: 042
     Dates: start: 20191212, end: 20191212
  36. FENISTIL [Concomitant]
     Active Substance: DIMETHINDENE
     Dosage: 4 MILLIGRAM, QD
     Route: 042
     Dates: start: 20191215, end: 20191215
  37. CUBICIN [Concomitant]
     Active Substance: DAPTOMYCIN
     Indication: ANTIBIOTIC THERAPY
     Dosage: 500 MILLIGRAM, QD
     Route: 042
     Dates: start: 20191226
  38. MERONEM [Concomitant]
     Active Substance: MEROPENEM
     Indication: PYREXIA
     Dosage: 2 GRAM, TID
     Route: 042
     Dates: start: 20191204, end: 20191213
  39. FENISTIL [Concomitant]
     Active Substance: DIMETHINDENE
     Dosage: 4 MILLIGRAM, QD
     Route: 042
     Dates: start: 20191225, end: 20191225

REACTIONS (1)
  - Encephalitis [Not Recovered/Not Resolved]

NARRATIVE: CASE EVENT DATE: 20200116
